FAERS Safety Report 5629023-1 (Version None)
Quarter: 2008Q1

REPORT INFORMATION
  Report Type: 
  Country: None (occurrence: None)
  Receive Date: 20080214
  Receipt Date: 20080205
  Transmission Date: 20080703
  Serious: Yes (Other)
  Sender: FDA-Public Use
  Company Number: 2008SP002140

PATIENT
  Age: 88 Year
  Sex: Male
  Weight: 81.6475 kg

DRUGS (3)
  1. CLARITIN-D 24 HOUR [Suspect]
     Indication: CHEST DISCOMFORT
     Dosage: 1 DF;BID;PO
     Route: 048
     Dates: start: 20071227, end: 20071229
  2. CLARITIN-D 24 HOUR [Suspect]
     Indication: COUGH
     Dosage: 1 DF;BID;PO
     Route: 048
     Dates: start: 20071227, end: 20071229
  3. VICKS DAYQUIL SINUS PRESSURE + PAIN RELIEF W/ IBUPROFEN [Suspect]
     Indication: COUGH
     Dates: start: 20071221, end: 20071230

REACTIONS (2)
  - MICTURITION URGENCY [None]
  - URINE OUTPUT DECREASED [None]
